FAERS Safety Report 8256477-7 (Version None)
Quarter: 2012Q1

REPORT INFORMATION
  Report Type: 
  Country: None (occurrence: None)
  Receive Date: 20120330
  Receipt Date: 20120322
  Transmission Date: 20120608
  Serious: Yes (Other)
  Sender: FDA-Public Use
  Company Number: 2012SP016133

PATIENT
  Age: 62 Year
  Sex: Male
  Weight: 57.8 kg

DRUGS (6)
  1. DEPAS [Concomitant]
  2. REBETOL [Suspect]
     Indication: HEPATITIS C
     Dosage: PO
     Route: 048
  3. INTERFERON BETA NOS [Suspect]
     Indication: HEPATITIS C
     Dosage: 6 MIU;QD;INDRP 6 MIU;QD;IV
     Route: 041
     Dates: start: 20110604, end: 20110619
  4. INTERFERON BETA NOS [Suspect]
     Indication: HEPATITIS C
     Dosage: 6 MIU;QD;INDRP 6 MIU;QD;IV
     Route: 041
     Dates: start: 20110620, end: 20110624
  5. TERPENONE [Concomitant]
  6. ACETAMINOPHEN [Concomitant]

REACTIONS (2)
  - BLOOD POTASSIUM INCREASED [None]
  - ECONOMIC PROBLEM [None]
